FAERS Safety Report 15549597 (Version 1)
Quarter: 2018Q4

REPORT INFORMATION
  Report Type: Spontaneous
  Country: US (occurrence: US)
  Receive Date: 20181018
  Receipt Date: 20181018
  Transmission Date: 20190205
  Serious: Yes (Hospitalization)
  Sender: FDA-Public Use
  Company Number: None

PATIENT
  Age: 60 Year
  Sex: Female
  Weight: 74.89 kg

DRUGS (1)
  1. LEVOTHYROXINE. [Suspect]
     Active Substance: LEVOTHYROXINE
     Indication: HYPOTHYROIDISM
     Route: 048
     Dates: start: 20180718, end: 20180919

REACTIONS (5)
  - Palpitations [None]
  - Tachycardia [None]
  - Hypertension [None]
  - Wrong dose [None]
  - Product administration error [None]

NARRATIVE: CASE EVENT DATE: 20180909
